FAERS Safety Report 8913908 (Version 2)
Quarter: 2012Q4

REPORT INFORMATION
  Report Type: 
  Country: IE (occurrence: IE)
  Receive Date: 20121119
  Receipt Date: 20121214
  Transmission Date: 20130627
  Serious: Yes (Other)
  Sender: FDA-Public Use
  Company Number: IE-MPIJNJ-2012-08086

PATIENT

DRUGS (6)
  1. VELCADE [Suspect]
     Indication: MULTIPLE MYELOMA
     Dosage: 1.3 mg/m2, Cyclic
     Route: 042
     Dates: start: 20111215
  2. MELPHALAN [Concomitant]
     Dosage: 18 mg, UNK
  3. MYCOSTATIN                         /00036501/ [Concomitant]
  4. PREDNISOLONE [Concomitant]
     Dosage: 40 mg, UNK
  5. PENTASA [Concomitant]
  6. VALTREX [Concomitant]
     Dosage: 500 mg, UNK

REACTIONS (6)
  - Drug dose omission [Recovered/Resolved]
  - Hypotension [Unknown]
  - Fatigue [Unknown]
  - Asthenia [Unknown]
  - Oedema peripheral [Unknown]
  - Heart rate irregular [Unknown]
